FAERS Safety Report 5148390-9 (Version None)
Quarter: 2006Q4

REPORT INFORMATION
  Report Type: 
  Country: None (occurrence: None)
  Receive Date: 20061106
  Receipt Date: 20061018
  Transmission Date: 20070319
  Serious: Yes (Other)
  Sender: FDA-Public Use
  Company Number: 2006128446

PATIENT
  Age: 75 Year
  Sex: Male

DRUGS (8)
  1. LIPITOR [Suspect]
     Dosage: 10 MG (10 MG,1 IN 1 D), ORAL
     Route: 048
  2. ENALAPRIL MALEATE [Concomitant]
  3. PLENDIL [Concomitant]
  4. METOPROLOL TARTRATE [Concomitant]
  5. FUROSEMIDE [Concomitant]
  6. DIGOXIN [Concomitant]
  7. TENOX (TEMAZEPAM) [Concomitant]
  8. APURIN (ALLOPURINOL) [Concomitant]

REACTIONS (3)
  - ARRHYTHMIA [None]
  - CARDIAC FIBRILLATION [None]
  - THERAPEUTIC RESPONSE UNEXPECTED WITH DRUG SUBSTITUTION [None]
